FAERS Safety Report 5053763-9 (Version None)
Quarter: 2006Q3

REPORT INFORMATION
  Report Type: 
  Country: None (occurrence: None)
  Receive Date: 20060718
  Receipt Date: 20060705
  Transmission Date: 20061208
  Serious: Yes (Other)
  Sender: FDA-Public Use
  Company Number: PHEH2006US08571

PATIENT
  Age: 83 Year
  Sex: Female

DRUGS (3)
  1. DIOVAN [Suspect]
     Indication: HYPERTENSION
  2. LEXAPRO [Concomitant]
  3. CARDIZEM [Concomitant]

REACTIONS (5)
  - BALANCE DISORDER [None]
  - CONTUSION [None]
  - FALL [None]
  - HEAD INJURY [None]
  - SWELLING FACE [None]
